FAERS Safety Report 6431530-9 (Version None)
Quarter: 2009Q4

REPORT INFORMATION
  Report Type: 
  Country: None (occurrence: None)
  Receive Date: 20091103
  Receipt Date: 20091019
  Transmission Date: 20100525
  Serious: Yes (Hospitalization)
  Sender: FDA-Public Use
  Company Number: 02100-JPN-06-0398

PATIENT
  Age: 78 Year
  Sex: Male
  Weight: 65 kg

DRUGS (9)
  1. PLETAL [Suspect]
     Indication: CEREBRAL INFARCTION
     Dosage: 81 MG, QD; ORAL
     Route: 048
     Dates: start: 20050625, end: 20070517
  2. STARSIS (NATEGLINIDE) TABLET [Concomitant]
  3. FASTIC (NATEGLINIDE) TABLET [Concomitant]
  4. BEZATOL SR (BEZAFIBRATE) SLOW RELEASE TABLET [Concomitant]
  5. BASEN OD (VOGLIBOSE) TABLET [Concomitant]
  6. PURSENNID (SENNOSIDE) TABLET [Concomitant]
  7. GASTER D (FAMOTIDINE) TABLET [Concomitant]
  8. ALINAMIN F (FURSULTIAMINE) TABLET [Concomitant]
  9. GLIMICRON (GLICLAZIDE) TABLET [Concomitant]

REACTIONS (4)
  - ANGINA UNSTABLE [None]
  - BLOOD UREA INCREASED [None]
  - CONDITION AGGRAVATED [None]
  - DIABETES MELLITUS [None]
